FAERS Safety Report 7009597-9 (Version None)
Quarter: 2010Q3

REPORT INFORMATION
  Report Type: 
  Country: None (occurrence: None)
  Receive Date: 20100923
  Receipt Date: 20100913
  Transmission Date: 20110219
  Serious: Yes (Life-Threatening)
  Sender: FDA-Public Use
  Company Number: FR-PFIZER INC-2010117408

PATIENT
  Age: 28 Year
  Sex: Female

DRUGS (7)
  1. ATARAX [Suspect]
     Dosage: 50 MG, UNK
     Route: 048
  2. ATARAX [Suspect]
     Dosage: 11.25 G, SINGLE
     Route: 048
     Dates: start: 20100802
  3. ALPRAZOLAM [Suspect]
     Dosage: 15 MG, SINGLE
     Route: 048
     Dates: start: 20100802
  4. EQUANIL [Suspect]
     Dosage: 51 G, SINGLE
     Route: 048
     Dates: start: 20100802
  5. DIPIPERON [Suspect]
     Dosage: 800 MG, SINGLE
     Dates: start: 20100802
  6. ESCITALOPRAM OXALATE [Concomitant]
     Dosage: 10 MG, MORNING
  7. TERCIAN [Concomitant]
     Dosage: 20 MG DAILY

REACTIONS (4)
  - COMA [None]
  - SUICIDE ATTEMPT [None]
  - URINARY RETENTION [None]
  - VASOPLEGIA SYNDROME [None]
